FAERS Safety Report 7085229-9 (Version None)
Quarter: 2010Q4

REPORT INFORMATION
  Report Type: 
  Country: None (occurrence: None)
  Receive Date: 20101105
  Receipt Date: 20101025
  Transmission Date: 20110411
  Serious: Yes (Other)
  Sender: FDA-Public Use
  Company Number: CA-JNJFOC-20101007936

PATIENT
  Sex: Female
  Weight: 98.6 kg

DRUGS (7)
  1. REMICADE [Suspect]
     Indication: PSORIATIC ARTHROPATHY
     Route: 042
  2. REMICADE [Suspect]
     Route: 042
  3. SULPHASALAZINE [Concomitant]
  4. LEFLUNOMIDE [Concomitant]
  5. SYNTHROID [Concomitant]
  6. NAPROXEN [Concomitant]
  7. ALTACE [Concomitant]

REACTIONS (1)
  - TOOTH DISORDER [None]
